FAERS Safety Report 7931574-1 (Version None)
Quarter: 2011Q4

REPORT INFORMATION
  Report Type: 
  Country: None (occurrence: None)
  Receive Date: 20111121
  Receipt Date: 20111121
  Transmission Date: 20120403
  Serious: Yes (Hospitalization)
  Sender: FDA-Public Use
  Company Number: None

PATIENT
  Age: 45 Year
  Sex: Female
  Weight: 81.646 kg

DRUGS (1)
  1. LUPRON [Suspect]
     Dosage: 1

REACTIONS (9)
  - ABDOMINAL PAIN UPPER [None]
  - HYPERTENSION [None]
  - DRY MOUTH [None]
  - MALAISE [None]
  - NAUSEA [None]
  - HYPERHIDROSIS [None]
  - VOMITING [None]
  - CHEST PAIN [None]
  - ASTHENIA [None]
